FAERS Safety Report 17756733 (Version 1)
Quarter: 2020Q2

REPORT INFORMATION
  Report Type: Spontaneous
  Country: US (occurrence: US)
  Receive Date: 20200507
  Receipt Date: 20200507
  Transmission Date: 20200714
  Serious: Yes (Death)
  Sender: FDA-Public Use
  Company Number: None

PATIENT
  Age: 72 Year
  Sex: Male

DRUGS (11)
  1. CLOSBETASOL [Concomitant]
  2. FLUOCINONIDE CRM [Concomitant]
  3. INLYTA [Suspect]
     Active Substance: AXITINIB
     Indication: RENAL CANCER
     Route: 048
     Dates: start: 20200409
  4. ENBREL [Concomitant]
     Active Substance: ETANERCEPT
  5. HALOBETASOL [Concomitant]
     Active Substance: HALOBETASOL PROPIONATE
  6. EXFORGE [Concomitant]
     Active Substance: AMLODIPINE BESYLATE\VALSARTAN
  7. APEXICON E [Concomitant]
     Active Substance: DIFLORASONE DIACETATE
  8. PREDNISOLONE. [Concomitant]
     Active Substance: PREDNISOLONE
  9. MTX [Concomitant]
     Active Substance: METHOTREXATE SODIUM
  10. PREDNISONE. [Concomitant]
     Active Substance: PREDNISONE
  11. AZOR [Concomitant]
     Active Substance: AMLODIPINE BESYLATE\OLMESARTAN MEDOXOMIL

REACTIONS (1)
  - Death [None]
